FAERS Safety Report 5216658-3 (Version None)
Quarter: 2007Q1

REPORT INFORMATION
  Report Type: 
  Country: None (occurrence: None)
  Receive Date: 20061130
  Receipt Date: 20060620
  Transmission Date: 20070707
  Serious: Yes (Other)
  Sender: FDA-Public Use
  Company Number: US200604004391

PATIENT
  Age: 46 Year
  Sex: Female
  Weight: 69.8 kg

DRUGS (3)
  1. ZYPREXA [Suspect]
     Dosage: 2.5 MG
     Dates: start: 20020601
  2. FLUOXETINE [Concomitant]
  3. VENLAFAXINE HCL [Concomitant]

REACTIONS (10)
  - BLOOD CHOLESTEROL ABNORMAL [None]
  - BLOOD TRIGLYCERIDES INCREASED [None]
  - DIABETES MELLITUS [None]
  - DIABETIC COMA [None]
  - DIABETIC KETOACIDOSIS [None]
  - HYPERGLYCAEMIA [None]
  - HYPOGLYCAEMIA [None]
  - HYPOTENSION [None]
  - VISION BLURRED [None]
  - WEIGHT DECREASED [None]
